FAERS Safety Report 5825873-7 (Version None)
Quarter: 2008Q3

REPORT INFORMATION
  Report Type: 
  Country: None (occurrence: None)
  Receive Date: 20080723
  Receipt Date: 20080707
  Transmission Date: 20090109
  Serious: Yes (Hospitalization)
  Sender: FDA-Public Use
  Company Number: 2008EU001331

PATIENT
  Age: 73 Year
  Sex: Male

DRUGS (8)
  1. PROGRAF [Suspect]
     Indication: HEART TRANSPLANT
     Dosage: 2 MG, UID/QD, ORAL
     Route: 048
     Dates: start: 20040310, end: 20070319
  2. CELLCEPT [Concomitant]
  3. DABONAL (ENALAPRIL MALEATE) [Concomitant]
  4. DACORTIN (PREDNISONE) [Concomitant]
  5. FOSAMAX [Concomitant]
  6. SEGURIL (FUROSEMIDE SODIUM) [Concomitant]
  7. ZARATOR (ATORVASTATIN CALCIUM) [Concomitant]
  8. ZYLORIC (ALLOPURINOL SODIUM) [Concomitant]

REACTIONS (4)
  - FALL [None]
  - GAIT DISTURBANCE [None]
  - MUSCULAR WEAKNESS [None]
  - SYNCOPE [None]
